FAERS Safety Report 4635665-2 (Version None)
Quarter: 2005Q2

REPORT INFORMATION
  Report Type: 
  Country: None (occurrence: None)
  Receive Date: 20050413
  Receipt Date: 20050331
  Transmission Date: 20051028
  Serious: Yes (Death, Hospitalization)
  Sender: FDA-Public Use
  Company Number: AZAUS200500079

PATIENT
  Age: 83 Year
  Sex: Female
  Weight: 53.7512 kg

DRUGS (10)
  1. VIDAZA [Suspect]
     Indication: MYELODYSPLASTIC SYNDROME
     Dosage: 115 MG, SUBCUTAENOUS
     Route: 058
     Dates: start: 20041115, end: 20041123
  2. THALOMID [Suspect]
     Indication: MYELODYSPLASTIC SYNDROME
     Dosage: 200 MG AT BEDTIME, ORAL
     Route: 048
     Dates: start: 20030801, end: 20041028
  3. VERAPAMIL SR   (VERAPAMIL) [Concomitant]
  4. ASPIRIN [Concomitant]
  5. DILANTIN [Concomitant]
  6. OCUVITE (OCUVITE) [Concomitant]
  7. ZANTAC [Concomitant]
  8. PULMICORT [Concomitant]
  9. ATROVENT [Concomitant]
  10. ALBUTEROL [Concomitant]

REACTIONS (8)
  - AGITATION [None]
  - ANAEMIA [None]
  - COMA [None]
  - GASTROINTESTINAL HAEMORRHAGE [None]
  - MYOCLONUS [None]
  - NEUROPATHY [None]
  - THROMBOCYTOPENIA [None]
  - WHITE BLOOD CELL COUNT DECREASED [None]
